FAERS Safety Report 5670536-4 (Version None)
Quarter: 2008Q1

REPORT INFORMATION
  Report Type: 
  Country: None (occurrence: None)
  Receive Date: 20080314
  Receipt Date: 20080314
  Transmission Date: 20080703
  Serious: No
  Sender: FDA-Public Use
  Company Number: None

PATIENT
  Sex: Female
  Weight: 86.1834 kg

DRUGS (2)
  1. ZICAM NASAL GEL ZINCUM GLUCONICUM 2X MATRIXX INITIATIVES [Suspect]
     Indication: NASOPHARYNGITIS
     Dosage: 1 SWAB EACH NOSTRIL W COLD EVERY 4 HOURS NASAL
     Route: 045
     Dates: start: 20031101, end: 20040301
  2. ZICAM GEL SWAB ZINCUM GLUCONICUM 2X MATRIXX INITIATIVES [Suspect]
     Indication: NASOPHARYNGITIS
     Dosage: 1 PUMP EACH NOSTRIL W/ COLD EVERY 4 HOURS NASAL
     Route: 045
     Dates: start: 20031101, end: 20040301

REACTIONS (1)
  - PAROSMIA [None]
